FAERS Safety Report 16045713 (Version 1)
Quarter: 2019Q1

REPORT INFORMATION
  Report Type: Other
  Country: DK (occurrence: DK)
  Receive Date: 20190307
  Receipt Date: 20190307
  Transmission Date: 20190418
  Serious: Yes (Death, Other)
  Sender: FDA-Public Use
  Company Number: DK-APOTEX-2019AP008778

PATIENT
  Age: 56 Year
  Sex: Female

DRUGS (5)
  1. OLANZAPINE. [Suspect]
     Active Substance: OLANZAPINE
     Indication: PRODUCT USED FOR UNKNOWN INDICATION
     Dosage: UNK
     Route: 065
  2. TRAMADOL HYDROCHLORIDE. [Suspect]
     Active Substance: TRAMADOL HYDROCHLORIDE
     Indication: BACK PAIN
     Dosage: STYRKE: 50 MG.
     Route: 048
     Dates: start: 20160329
  3. IBUPROFEN. [Concomitant]
     Active Substance: IBUPROFEN
     Indication: PAIN
     Dosage: UKENDT DOSIS
     Route: 048
  4. PANODIL [Concomitant]
     Active Substance: ACETAMINOPHEN
     Indication: PAIN
     Dosage: UKENDT DOSIS EFTER BEHOV ; AS NECESSARY
     Route: 048
  5. CHLORZOXAZONE. [Concomitant]
     Active Substance: CHLORZOXAZONE
     Indication: PRODUCT USED FOR UNKNOWN INDICATION
     Dosage: STYRKE: 250 MG.
     Route: 048

REACTIONS (3)
  - Circulatory collapse [Fatal]
  - Dizziness [Fatal]
  - Respiratory depression [Fatal]

NARRATIVE: CASE EVENT DATE: 20160404
